FAERS Safety Report 5867958-5 (Version None)
Quarter: 2008Q3

REPORT INFORMATION
  Report Type: 
  Country: None (occurrence: None)
  Receive Date: 20080902
  Receipt Date: 20080826
  Transmission Date: 20090109
  Serious: Yes (Hospitalization)
  Sender: FDA-Public Use
  Company Number: FR-BOEHRINGER INGELHEIM GMBH, GERMANY-2008-FF-00609FF

PATIENT
  Sex: Male

DRUGS (10)
  1. CATAPRES [Suspect]
  2. PERFALGAN [Suspect]
     Indication: PYREXIA
     Route: 042
  3. LIORESAL [Suspect]
  4. MOTILIUM [Concomitant]
  5. DEBRIDAT [Concomitant]
  6. PROPOXYPHENE HCL AND ACETAMINOPHEN [Concomitant]
  7. KEPPRA [Concomitant]
  8. HYPNOVEL [Concomitant]
  9. FENTANYL-25 [Concomitant]
  10. XANAX [Concomitant]

REACTIONS (1)
  - HYPOTENSION [None]
